FAERS Safety Report 4814020-6 (Version None)
Quarter: 2005Q4

REPORT INFORMATION
  Report Type: 
  Country: None (occurrence: None)
  Receive Date: 20051028
  Receipt Date: 20050317
  Transmission Date: 20060501
  Serious: No
  Sender: FDA-Public Use
  Company Number: US-GLAXOSMITHKLINE-A0550250A

PATIENT
  Age: 78 Year
  Sex: Male

DRUGS (8)
  1. SEREVENT [Suspect]
     Indication: ASTHMA
     Dosage: 1PUFF TWICE PER DAY
     Route: 055
  2. ALBUTEROL [Concomitant]
  3. MEVACOR [Concomitant]
  4. SINGULAIR [Concomitant]
  5. GLUCOPHAGE [Concomitant]
  6. PRINIVIL [Concomitant]
  7. QVAR [Concomitant]
  8. ALBUTEROL [Concomitant]

REACTIONS (1)
  - ASTHMA [None]
